FAERS Safety Report 5015148-0 (Version None)
Quarter: 2006Q2

REPORT INFORMATION
  Report Type: 
  Country: None (occurrence: None)
  Receive Date: 20060530
  Receipt Date: 20060519
  Transmission Date: 20061013
  Serious: Yes (Hospitalization)
  Sender: FDA-Public Use
  Company Number: ZONI002312

PATIENT
  Age: 79 Year
  Sex: Male

DRUGS (2)
  1. ZONISAMIDE [Suspect]
     Indication: EPILEPSY
     Dosage: 200 MG, 2 IN 1 D, ORAL
     Route: 048
     Dates: start: 20060108, end: 20060216
  2. YODEL-S           (SENNA EXTRACT) [Suspect]

REACTIONS (9)
  - EOSINOPHILIA [None]
  - GENERALISED ERYTHEMA [None]
  - HUMAN HERPES VIRUS 6 SEROLOGY POSITIVE [None]
  - HYPERURICAEMIA [None]
  - LEUKAEMOID REACTION [None]
  - LIVER DISORDER [None]
  - PYREXIA [None]
  - RASH GENERALISED [None]
  - RENAL DISORDER [None]
